FAERS Safety Report 9789443 (Version 2)
Quarter: 2014Q1

REPORT INFORMATION
  Report Type: Spontaneous
  Country: DE (occurrence: DE)
  Receive Date: 20131231
  Receipt Date: 20140124
  Transmission Date: 20141002
  Serious: Yes (Life-Threatening, Hospitalization)
  Sender: FDA-Public Use
  Company Number: DE-ROCHE-1326840

PATIENT
  Age: 72 Year
  Sex: Male

DRUGS (4)
  1. CELLCEPT [Suspect]
     Indication: MYASTHENIA GRAVIS
     Route: 048
     Dates: start: 201310, end: 20131228
  2. PRESINOL [Concomitant]
     Indication: MYASTHENIA GRAVIS
     Route: 048
  3. BISOPROLOL [Concomitant]
     Route: 048
  4. METHYLPREDNISOLON [Concomitant]
     Route: 065

REACTIONS (3)
  - Pancreatitis [Unknown]
  - Lipase increased [Unknown]
  - Off label use [Unknown]
